FAERS Safety Report 8776252 (Version 1)
Quarter: 2012Q4

REPORT INFORMATION
  Report Type: 
  Country: US (occurrence: US)
  Receive Date: 20120910
  Receipt Date: 20120910
  Transmission Date: 20130627
  Serious: No
  Sender: FDA-Public Use
  Company Number: US-PFIZER INC-2012221445

PATIENT
  Age: 30 Year
  Sex: Female
  Weight: 77.1 kg

DRUGS (4)
  1. LYRICA [Suspect]
     Dosage: 150 mg, 2x/day
     Dates: start: 2012
  2. PREDNISONE [Suspect]
     Indication: CROHN^S DISEASE
     Dosage: UNK
     Dates: start: 201010, end: 2012
  3. CYMBALTA [Concomitant]
     Indication: DEPRESSION
     Dosage: 30 mg, daily
     Dates: start: 2012
  4. CYMBALTA [Concomitant]
     Indication: ANXIETY

REACTIONS (5)
  - Swelling face [Unknown]
  - Abdominal distension [Unknown]
  - Somnolence [Unknown]
  - Increased appetite [Unknown]
  - Feeling abnormal [Unknown]
